FAERS Safety Report 12417819 (Version 1)
Quarter: 2016Q2

REPORT INFORMATION
  Report Type: Report from Study
  Country: RO (occurrence: RO)
  Receive Date: 20160530
  Receipt Date: 20160530
  Transmission Date: 20160815
  Serious: Yes (Other)
  Sender: FDA-Public Use
  Company Number: RO-KADMON PHARMACEUTICALS, LLC-KAD201605-001967

PATIENT
  Age: 49 Year
  Sex: Male

DRUGS (14)
  1. EXVIERA [Suspect]
     Active Substance: DASABUVIR
     Dosage: FILM-COATED TABLET
     Route: 048
     Dates: start: 20160511, end: 20160512
  2. FUROSEMID [Concomitant]
     Active Substance: FUROSEMIDE
     Dates: start: 201511
  3. PRESTARIUM [Concomitant]
     Active Substance: PERINDOPRIL
     Dates: start: 201511
  4. RIBAVIRIN. [Suspect]
     Active Substance: RIBAVIRIN
     Indication: CHRONIC HEPATITIS C
     Dosage: FILM-COATED TABLET
     Route: 048
     Dates: start: 20160406, end: 20160413
  5. EXVIERA [Suspect]
     Active Substance: DASABUVIR
     Indication: CHRONIC HEPATITIS C
     Dosage: FILM-COATED TABLET
     Route: 048
     Dates: start: 20160406, end: 20160416
  6. ADALAT [Concomitant]
     Active Substance: NIFEDIPINE
     Dates: start: 201511
  7. METOPROLOL. [Concomitant]
     Active Substance: METOPROLOL
     Dates: start: 201511
  8. VIEKIRAX [Suspect]
     Active Substance: OMBITASVIR\PARITAPREVIR\RITONAVIR
     Dosage: FILM-COATED TABLET
     Route: 048
     Dates: start: 20160511, end: 20160512
  9. VALSARTAN. [Concomitant]
     Active Substance: VALSARTAN
     Dates: start: 201511
  10. VIEKIRAX [Suspect]
     Active Substance: OMBITASVIR\PARITAPREVIR\RITONAVIR
     Indication: CHRONIC HEPATITIS C
     Dosage: FILM-COATED TABLET
     Route: 048
     Dates: start: 20160406, end: 20160416
  11. GLICLAZIDE [Concomitant]
     Active Substance: GLICLAZIDE
     Dates: start: 201511
  12. URSOFALK [Concomitant]
     Active Substance: URSODIOL
     Dates: start: 201511
  13. MILURIT [Concomitant]
     Active Substance: ALLOPURINOL
     Dates: start: 201511
  14. VITAMIN D [Concomitant]
     Active Substance: CHOLECALCIFEROL
     Dates: start: 201511

REACTIONS (3)
  - Anaemia [Unknown]
  - Chronic kidney disease [Unknown]
  - Ascites [Recovered/Resolved]

NARRATIVE: CASE EVENT DATE: 20160409
